FAERS Safety Report 5632028-8 (Version None)
Quarter: 2008Q1

REPORT INFORMATION
  Report Type: 
  Country: None (occurrence: None)
  Receive Date: 20080213
  Receipt Date: 20080128
  Transmission Date: 20080703
  Serious: Yes (Other)
  Sender: FDA-Public Use
  Company Number: 8029618

PATIENT
  Sex: Male

DRUGS (2)
  1. KEPPRA [Suspect]
  2. CARBAMAZEPINE [Concomitant]

REACTIONS (2)
  - BLOOD DISORDER [None]
  - NEOPLASM MALIGNANT [None]
